FAERS Safety Report 9828010 (Version 1)
Quarter: 2013Q4

REPORT INFORMATION
  Report Type: Spontaneous
  Country: US (occurrence: None)
  Receive Date: 20131120
  Receipt Date: 20131120
  Transmission Date: 20140711
  Serious: Yes (Other)
  Sender: FDA-Public Use
  Company Number: 1000048083

PATIENT
  Age: 60 Year
  Sex: Male

DRUGS (3)
  1. VIIBRYD [Suspect]
     Indication: DEPRESSION
     Route: 048
     Dates: start: 20130810, end: 20130816
  2. RISPERDAL (RISPERIDONE) (RISPERIDONE) [Concomitant]
  3. LISINOPRIL (LISINOPRIL)(LISINOPRIL) [Concomitant]

REACTIONS (2)
  - Insomnia [None]
  - Irritability [None]
